FAERS Safety Report 4268182-2 (Version None)
Quarter: 2004Q1

REPORT INFORMATION
  Report Type: 
  Country: None (occurrence: None)
  Receive Date: 20040109
  Receipt Date: 20030407
  Transmission Date: 20041129
  Serious: Yes (Hospitalization, Disabling)
  Sender: FDA-Public Use
  Company Number: WAES 0304USA00741

PATIENT
  Age: 46 Year
  Sex: Female
  Weight: 105 kg

DRUGS (10)
  1. TYLENOL [Concomitant]
     Dates: start: 20010524, end: 20030722
  2. ASPIRIN [Suspect]
     Dates: start: 20010528
  3. LIPITOR [Concomitant]
     Dates: start: 20010524, end: 20030722
  4. CELEBREX [Suspect]
     Indication: RHEUMATOID ARTHRITIS
     Dates: start: 20010201, end: 20010506
  5. DYAZIDE [Suspect]
  6. IRON (UNSPECIFIED) [Suspect]
     Dates: start: 20010201
  7. NITROGLYCERIN [Suspect]
  8. VIOXX [Suspect]
     Route: 048
     Dates: start: 20010507, end: 20010516
  9. VIOXX [Suspect]
     Route: 048
     Dates: start: 20010604, end: 20010613
  10. VIOXX [Suspect]
     Route: 048
     Dates: start: 20010517, end: 20010529

REACTIONS (19)
  - ANGINA UNSTABLE [None]
  - AORTIC VALVE INCOMPETENCE [None]
  - BLOOD PRESSURE SYSTOLIC INCREASED [None]
  - CONSTIPATION [None]
  - CORONARY ARTERY DISEASE [None]
  - CORONARY ARTERY RESTENOSIS [None]
  - FALL [None]
  - HYPERLIPIDAEMIA [None]
  - HYPERTENSION [None]
  - INSOMNIA [None]
  - IRON DEFICIENCY ANAEMIA [None]
  - MALABSORPTION [None]
  - MITRAL VALVE INCOMPETENCE [None]
  - MYOCARDIAL INFARCTION [None]
  - MYOCARDIAL ISCHAEMIA [None]
  - RASH [None]
  - RECTAL HAEMORRHAGE [None]
  - STRESS SYMPTOMS [None]
  - ULCER [None]
